FAERS Safety Report 24268337 (Version 1)
Quarter: 2024Q3

REPORT INFORMATION
  Report Type: Spontaneous
  Country: US (occurrence: US)
  Receive Date: 20240830
  Receipt Date: 20240830
  Transmission Date: 20241017
  Serious: No
  Sender: IPSEN
  Company Number: US-IPSEN Group, Research and Development-2024-16532

PATIENT
  Sex: Female
  Weight: 74.8 kg

DRUGS (14)
  1. IQIRVO [Suspect]
     Active Substance: ELAFIBRANOR
     Indication: Primary biliary cholangitis
     Dosage: DAILY AT 7AM
     Route: 048
  2. OCALIVA [Suspect]
     Active Substance: OBETICHOLIC ACID
     Indication: Product used for unknown indication
     Route: 065
  3. LATANOPROST [Concomitant]
     Active Substance: LATANOPROST
  4. BRIMONIDINE TARTRATE [Concomitant]
     Active Substance: BRIMONIDINE TARTRATE
  5. ZYRTEC [Concomitant]
     Active Substance: CETIRIZINE HYDROCHLORIDE
  6. KRILL OIL [Concomitant]
     Active Substance: DIETARY SUPPLEMENT\KRILL OIL
  7. HAWTHORN BERRY [Concomitant]
  8. GLUCOSAMINE SULFATE [Concomitant]
     Active Substance: GLUCOSAMINE SULFATE
  9. BETAMETHASONE VALERATE [Concomitant]
     Active Substance: BETAMETHASONE VALERATE
  10. BIOTIN [Concomitant]
     Active Substance: BIOTIN
  11. AMLODIPINE BESYLATE [Concomitant]
     Active Substance: AMLODIPINE BESYLATE
  12. HYDROCHLOROTHIAZIDE\TRIAMTERENE [Concomitant]
     Active Substance: HYDROCHLOROTHIAZIDE\TRIAMTERENE
  13. METOPROLOL TARTRATE [Concomitant]
     Active Substance: METOPROLOL TARTRATE
  14. URSODIOL [Concomitant]
     Active Substance: URSODIOL

REACTIONS (1)
  - Pruritus [Unknown]
